FAERS Safety Report 9279457 (Version 1)
Quarter: 2013Q2

REPORT INFORMATION
  Report Type: Spontaneous
  Country: US (occurrence: US)
  Receive Date: 20130508
  Receipt Date: 20130508
  Transmission Date: 20140414
  Serious: Yes (Hospitalization, Other)
  Sender: FDA-Public Use
  Company Number: US-B.I. PHARMACEUTICALS,INC./RIDGEFIELD-2013-BI-11779BP

PATIENT
  Sex: Female

DRUGS (3)
  1. COMBIVENT [Suspect]
     Indication: CHRONIC OBSTRUCTIVE PULMONARY DISEASE
     Route: 055
     Dates: start: 2008, end: 201304
  2. TIOPROPIUM BROMIDE [Concomitant]
     Route: 055
  3. ALBUTEROL [Concomitant]
     Route: 055

REACTIONS (1)
  - Small cell lung cancer [Not Recovered/Not Resolved]
